FAERS Safety Report 8396184-3 (Version None)
Quarter: 2012Q2

REPORT INFORMATION
  Report Type: 
  Country: None (occurrence: None)
  Receive Date: 20120530
  Receipt Date: 20120524
  Transmission Date: 20120825
  Serious: Yes (Death)
  Sender: FDA-Public Use
  Company Number: JP-GLAXOSMITHKLINE-B0791369A

PATIENT
  Sex: Female
  Weight: 59 kg

DRUGS (20)
  1. PREDNISOLONE [Concomitant]
     Indication: IDIOPATHIC THROMBOCYTOPENIC PURPURA
     Dosage: 3IUAX PER DAY
     Route: 048
     Dates: start: 20110413, end: 20111005
  2. PREDNISOLONE [Concomitant]
     Dosage: 20MG PER DAY
     Route: 048
     Dates: start: 20111021, end: 20111024
  3. RABEPRAZOLE SODIUM [Concomitant]
     Indication: PROPHYLAXIS
     Route: 048
     Dates: end: 20111024
  4. RHYTHMY [Concomitant]
     Route: 048
     Dates: end: 20111024
  5. ZADITEN [Concomitant]
     Route: 031
     Dates: end: 20110913
  6. CARVEDILOL [Concomitant]
     Route: 048
     Dates: start: 20110921, end: 20111007
  7. COTRIM [Concomitant]
     Indication: PROPHYLAXIS
     Dosage: 1IUAX PER DAY
     Route: 048
     Dates: start: 20110608, end: 20111024
  8. FUROSEMIDE [Concomitant]
     Dosage: 1IUAX PER DAY
     Route: 048
     Dates: start: 20110823, end: 20111024
  9. PRAVASTATIN [Concomitant]
     Route: 048
     Dates: end: 20111007
  10. PROMACTA [Suspect]
     Indication: IDIOPATHIC THROMBOCYTOPENIC PURPURA
     Dosage: 12.5MG PER DAY
     Route: 048
     Dates: start: 20110817, end: 20111007
  11. PREDNISOLONE [Concomitant]
     Dosage: 20MG PER DAY
     Route: 042
     Dates: start: 20111025, end: 20111103
  12. ALLEGRA [Concomitant]
     Route: 048
     Dates: end: 20111007
  13. ALDACTONE [Concomitant]
     Dosage: 1IUAX PER DAY
     Route: 048
     Dates: start: 20110823, end: 20111024
  14. CALFINA [Concomitant]
     Route: 048
     Dates: end: 20111007
  15. MAGNESIUM OXIDE [Concomitant]
     Route: 048
     Dates: end: 20111007
  16. MUCOSTA [Concomitant]
     Indication: PROPHYLAXIS
     Route: 048
     Dates: end: 20111007
  17. GLAKAY [Concomitant]
     Route: 048
     Dates: end: 20111007
  18. BASEN [Concomitant]
     Route: 048
     Dates: end: 20111007
  19. AMARYL [Concomitant]
     Route: 048
     Dates: end: 20111007
  20. TANATRIL [Concomitant]
     Dosage: 1IUAX PER DAY
     Route: 048
     Dates: start: 20111006, end: 20111024

REACTIONS (4)
  - CEREBRAL INFARCTION [None]
  - PNEUMONIA [None]
  - DISSEMINATED INTRAVASCULAR COAGULATION [None]
  - MULTI-ORGAN FAILURE [None]
